FAERS Safety Report 22275027 (Version 1)
Quarter: 2023Q2

REPORT INFORMATION
  Report Type: Report from Study
  Country: CA (occurrence: CA)
  Receive Date: 20230502
  Receipt Date: 20230502
  Transmission Date: 20230722
  Serious: Yes (Other)
  Sender: FDA-Public Use
  Company Number: CA-drreddys-CLI/CAN/23/0164267

PATIENT
  Age: 71 Year
  Sex: Female

DRUGS (2)
  1. ZOLEDRONIC [Suspect]
     Active Substance: ZOLEDRONIC ACID
     Indication: Osteoporosis
     Dosage: 5MG/100ML
     Dates: start: 20210123
  2. ZOLEDRONIC [Suspect]
     Active Substance: ZOLEDRONIC ACID
     Dosage: 5MG/100ML
     Dates: start: 20220121

REACTIONS (1)
  - Supraventricular tachycardia [Recovering/Resolving]
